FAERS Safety Report 8485423-6 (Version None)
Quarter: 2012Q3

REPORT INFORMATION
  Report Type: 
  Country: None (occurrence: None)
  Receive Date: 20120703
  Receipt Date: 20120629
  Transmission Date: 20120928
  Serious: Yes (Other)
  Sender: FDA-Public Use
  Company Number: PHEH2012US012966

PATIENT
  Sex: Male

DRUGS (1)
  1. LOTREL [Suspect]
     Dosage: 1 DF (10/20 MG), QD
     Route: 048

REACTIONS (3)
  - MYALGIA [None]
  - RHABDOMYOLYSIS [None]
  - MYOGLOBIN BLOOD INCREASED [None]
